FAERS Safety Report 9660915 (Version 2)
Quarter: 2013Q4

REPORT INFORMATION
  Report Type: Spontaneous
  Country: US (occurrence: US)
  Receive Date: 20131031
  Receipt Date: 20131220
  Transmission Date: 20140711
  Serious: Yes (Other)
  Sender: FDA-Public Use
  Company Number: US-TEVA-441622USA

PATIENT
  Age: 53 Year
  Sex: Female

DRUGS (1)
  1. COPAXONE [Suspect]
     Indication: MULTIPLE SCLEROSIS
     Dates: start: 20130928

REACTIONS (8)
  - Neck surgery [Not Recovered/Not Resolved]
  - Muscular weakness [Unknown]
  - Balance disorder [Unknown]
  - Confusional state [Unknown]
  - Fatigue [Unknown]
  - Pain in extremity [Unknown]
  - Local swelling [Unknown]
  - Back pain [Unknown]
